FAERS Safety Report 14584399 (Version 1)
Quarter: 2018Q1

REPORT INFORMATION
  Report Type: Report from Study
  Country: CA (occurrence: CA)
  Receive Date: 20180301
  Receipt Date: 20180301
  Transmission Date: 20180509
  Serious: Yes (Other)
  Sender: FDA-Public Use
  Company Number: CA-ROCHE-2076436

PATIENT
  Sex: Female

DRUGS (16)
  1. RAMIPRIL. [Concomitant]
     Active Substance: RAMIPRIL
  2. DOMPERIDONE [Concomitant]
     Active Substance: DOMPERIDONE
  3. METHOTREXATE. [Concomitant]
     Active Substance: METHOTREXATE
  4. MELOXICAM. [Concomitant]
     Active Substance: MELOXICAM
  5. BABY ASPIRIN [Concomitant]
     Active Substance: ASPIRIN
  6. RITUXAN [Suspect]
     Active Substance: RITUXIMAB
     Indication: RHEUMATOID ARTHRITIS
     Dosage: DAY 1, 15
     Route: 042
     Dates: start: 20151110
  7. DIMENHYDRINATE. [Concomitant]
     Active Substance: DIMENHYDRINATE
     Indication: PREMEDICATION
     Route: 042
     Dates: start: 20151110, end: 20151110
  8. INSULIN [Concomitant]
     Active Substance: INSULIN NOS
  9. CERIVASTATIN [Concomitant]
     Active Substance: CERIVASTATIN
  10. ELTROXIN [Concomitant]
     Active Substance: LEVOTHYROXINE
  11. METHYLPREDNISOLONE. [Concomitant]
     Active Substance: METHYLPREDNISOLONE
     Indication: PREMEDICATION
     Route: 042
     Dates: start: 20151110
  12. EZETIMIBE. [Concomitant]
     Active Substance: EZETIMIBE
  13. FOLIC ACID. [Concomitant]
     Active Substance: FOLIC ACID
  14. DIPHENHYDRAMINE HCL [Concomitant]
     Active Substance: DIPHENHYDRAMINE HYDROCHLORIDE
     Indication: PREMEDICATION
     Route: 048
     Dates: start: 20151110
  15. ACETAMINOPHEN. [Concomitant]
     Active Substance: ACETAMINOPHEN
     Indication: PREMEDICATION
     Route: 048
     Dates: start: 20151110
  16. CELEBREX [Concomitant]
     Active Substance: CELECOXIB

REACTIONS (1)
  - Procedural complication [Unknown]
